FAERS Safety Report 11455483 (Version 1)
Quarter: 2015Q3

REPORT INFORMATION
  Report Type: Spontaneous
  Country: US (occurrence: US)
  Receive Date: 20150903
  Receipt Date: 20150903
  Transmission Date: 20151125
  Serious: Yes (Other)
  Sender: FDA-Public Use
  Company Number: US-TAKEDA-2013TUS001455

PATIENT

DRUGS (6)
  1. ACTOS [Suspect]
     Active Substance: PIOGLITAZONE HYDROCHLORIDE
     Dosage: 45 MG, UNK
     Route: 048
     Dates: start: 2003, end: 2011
  2. METFORMIN [Concomitant]
     Active Substance: METFORMIN HYDROCHLORIDE
     Dosage: 850 MG, BID
     Dates: start: 201201
  3. LANTUS [Concomitant]
     Active Substance: INSULIN GLARGINE
     Dosage: 50 IU, QD
     Dates: start: 2007
  4. ACTOPLUS MET [Suspect]
     Active Substance: METFORMIN HYDROCHLORIDE\PIOGLITAZONE HYDROCHLORIDE
     Indication: TYPE 2 DIABETES MELLITUS
     Dosage: UNK
     Route: 048
     Dates: start: 2003, end: 2011
  5. ACTOS [Suspect]
     Active Substance: PIOGLITAZONE HYDROCHLORIDE
     Indication: TYPE 2 DIABETES MELLITUS
     Dosage: 30 MG, UNK
     Route: 048
     Dates: start: 200111, end: 2002
  6. GLUCOTROL [Concomitant]
     Active Substance: GLIPIZIDE
     Dosage: 10 MG, UNK
     Dates: start: 1999, end: 2012

REACTIONS (1)
  - Bladder cancer [Not Recovered/Not Resolved]

NARRATIVE: CASE EVENT DATE: 2011
